FAERS Safety Report 7419970-2 (Version None)
Quarter: 2011Q2

REPORT INFORMATION
  Report Type: 
  Country: None (occurrence: None)
  Receive Date: 20110418
  Receipt Date: 20110408
  Transmission Date: 20111010
  Serious: Yes (Hospitalization)
  Sender: FDA-Public Use
  Company Number: US-BIOGENIDEC-2011BI013424

PATIENT
  Age: 57 Year
  Sex: Female
  Weight: 66 kg

DRUGS (2)
  1. AVONEX [Suspect]
     Indication: MULTIPLE SCLEROSIS
     Route: 030
     Dates: start: 20080110, end: 20091015
  2. AVONEX [Suspect]
     Route: 030
     Dates: start: 20100805, end: 20110119

REACTIONS (2)
  - PELVIC FRACTURE [None]
  - HIP FRACTURE [None]
